FAERS Safety Report 6656618-9 (Version None)
Quarter: 2010Q1

REPORT INFORMATION
  Report Type: 
  Country: None (occurrence: None)
  Receive Date: 20100329
  Receipt Date: 20100325
  Transmission Date: 20100710
  Serious: Yes (Death, Other)
  Sender: FDA-Public Use
  Company Number: US-CELGENEUS-163-21880-10030534

PATIENT
  Sex: Female

DRUGS (3)
  1. REVLIMID [Suspect]
     Route: 048
     Dates: start: 20060922
  2. REVLIMID [Suspect]
     Route: 048
     Dates: start: 20080701, end: 20100101
  3. REVLIMID [Suspect]
     Route: 048
     Dates: start: 20071101, end: 20080101

REACTIONS (3)
  - DEATH [None]
  - PNEUMONIA [None]
  - RENAL FAILURE [None]
